FAERS Safety Report 13405848 (Version 2)
Quarter: 2017Q2

REPORT INFORMATION
  Report Type: Spontaneous
  Country: US (occurrence: US)
  Receive Date: 20170405
  Receipt Date: 20170509
  Transmission Date: 20170830
  Serious: No
  Sender: FDA-Public Use
  Company Number: US-PFIZER INC-2017146867

PATIENT
  Age: 86 Year
  Sex: Female
  Weight: 54.43 kg

DRUGS (11)
  1. LYRICA [Suspect]
     Active Substance: PREGABALIN
     Indication: BACK PAIN
     Dosage: 100 MG, 3X/DAY
     Route: 048
     Dates: start: 201703
  2. LYRICA [Suspect]
     Active Substance: PREGABALIN
     Dosage: 75 MG, 3X/DAY
     Route: 048
     Dates: start: 20170407, end: 20170420
  3. HYDROCODONE [Concomitant]
     Active Substance: HYDROCODONE
     Indication: PAIN
     Dosage: 15 MG, DAILY(5MG IN THE DAYTIME AND 10MG AT NIGHT)
  4. KEFLEX [Concomitant]
     Active Substance: CEPHALEXIN
     Indication: CYSTITIS
     Dosage: 250 MG, 1X/DAY(250MG CAPSULE ONCE A DAY)
  5. ROBAXIN [Concomitant]
     Active Substance: METHOCARBAMOL
     Indication: MUSCLE RELAXANT THERAPY
     Dosage: 750 MG, 3X/DAY
  6. LYRICA [Suspect]
     Active Substance: PREGABALIN
     Dosage: 100 MG, 3X/DAY
     Route: 048
     Dates: start: 20170316
  7. ALEVE [Concomitant]
     Active Substance: NAPROXEN SODIUM
     Indication: PAIN
     Dosage: 220 MG, 2X/DAY(220MG NSAID, TAKES 1 OF THEM TWICE A DAY)
  8. VITAMINS WITH MINERALS [Concomitant]
     Active Substance: MINERALS\VITAMINS
     Indication: VITAMIN SUPPLEMENTATION
     Dosage: 1 DF, DAILY(TAKES 1 DAILY)
  9. TAMOXIFEN [Concomitant]
     Active Substance: TAMOXIFEN
     Indication: BREAST CANCER
     Dosage: 20 MG, DAILY(20MG 1 TABLET DAILY)
  10. KEFLEX [Concomitant]
     Active Substance: CEPHALEXIN
     Indication: ANTIBIOTIC THERAPY
  11. CALCIUM [Concomitant]
     Active Substance: CALCIUM
     Indication: MINERAL SUPPLEMENTATION
     Dosage: 500 MG, DAILY(500MG 1 TABLET A DAY)

REACTIONS (7)
  - Memory impairment [Unknown]
  - Fall [Unknown]
  - Tremor [Unknown]
  - Arthralgia [Unknown]
  - Flushing [Not Recovered/Not Resolved]
  - Hyperhidrosis [Unknown]
  - Balance disorder [Unknown]

NARRATIVE: CASE EVENT DATE: 20170403
